FAERS Safety Report 13054856 (Version 2)
Quarter: 2017Q1

REPORT INFORMATION
  Report Type: Spontaneous
  Country: US (occurrence: US)
  Receive Date: 20161222
  Receipt Date: 20170330
  Transmission Date: 20170428
  Serious: Yes (Hospitalization)
  Sender: FDA-Public Use
  Company Number: US-PFIZER INC-2016581294

PATIENT
  Age: 58 Year
  Sex: Female

DRUGS (1)
  1. XELJANZ XR [Suspect]
     Active Substance: TOFACITINIB CITRATE
     Indication: RHEUMATOID ARTHRITIS
     Dosage: 11 MG, UNK
     Dates: start: 201606

REACTIONS (7)
  - Pain in extremity [Unknown]
  - Onycholysis [Unknown]
  - Joint injury [Unknown]
  - Headache [Unknown]
  - Blood pressure increased [Unknown]
  - Dizziness [Unknown]
  - Gait disturbance [Unknown]

NARRATIVE: CASE EVENT DATE: 20170324
